FAERS Safety Report 16320176 (Version 2)
Quarter: 2019Q2

REPORT INFORMATION
  Report Type: Spontaneous
  Country: FR (occurrence: FR)
  Receive Date: 20190516
  Receipt Date: 20190607
  Transmission Date: 20190711
  Serious: Yes (Hospitalization, Other)
  Sender: FDA-Public Use
  Company Number: FR-009507513-1905FRA004255

PATIENT
  Age: 63 Year
  Sex: Female
  Weight: 43 kg

DRUGS (1)
  1. ZEPATIER [Suspect]
     Active Substance: ELBASVIR\GRAZOPREVIR
     Indication: CHRONIC HEPATITIS C
     Dosage: 1 DOSAGE FORM, QD
     Route: 048
     Dates: start: 201711, end: 201802

REACTIONS (3)
  - Organising pneumonia [Recovered/Resolved]
  - Treatment noncompliance [Unknown]
  - Treatment failure [Unknown]

NARRATIVE: CASE EVENT DATE: 201804
